FAERS Safety Report 8136243-3 (Version None)
Quarter: 2012Q1

REPORT INFORMATION
  Report Type: 
  Country: None (occurrence: None)
  Receive Date: 20120210
  Receipt Date: 20120126
  Transmission Date: 20120608
  Serious: Yes (Hospitalization)
  Sender: FDA-Public Use
  Company Number: 2012000005

PATIENT
  Sex: Female

DRUGS (7)
  1. SINGULAIR [Concomitant]
  2. BISOPROLOL FUMARATE [Concomitant]
  3. EBASTINE [Concomitant]
  4. ACEON [Suspect]
     Indication: PRODUCT USED FOR UNKNOWN INDICATION
     Dosage: 2.5 MG, BID, ORAL 10 MG, BID, ORAL
     Route: 048
     Dates: start: 20100401, end: 20111201
  5. ACEON [Suspect]
     Indication: PRODUCT USED FOR UNKNOWN INDICATION
     Dosage: 2.5 MG, BID, ORAL 10 MG, BID, ORAL
     Route: 048
     Dates: start: 20111201, end: 20111226
  6. CRESTOR [Concomitant]
  7. ALDACTAZINE (ALTIZIDE, SPIRONOLACTONE) [Concomitant]

REACTIONS (7)
  - WEIGHT INCREASED [None]
  - DYSPNOEA [None]
  - RENAL FAILURE [None]
  - DRUG DISPENSING ERROR [None]
  - VOMITING [None]
  - INCORRECT DOSE ADMINISTERED [None]
  - PARAESTHESIA [None]
